FAERS Safety Report 23387011 (Version 4)
Quarter: 2024Q1

REPORT INFORMATION
  Report Type: Report from Study
  Country: AE (occurrence: AE)
  Receive Date: 20240110
  Receipt Date: 20240226
  Transmission Date: 20240410
  Serious: Yes (Hospitalization, Other)
  Sender: FDA-Public Use
  Company Number: AE-AstraZeneca-2024A004581

PATIENT
  Age: 8 Month
  Sex: Male

DRUGS (1)
  1. PALIVIZUMAB [Suspect]
     Active Substance: PALIVIZUMAB
     Indication: Premature baby
     Dosage: 15 MG/KG EVERY FOUR WEEKS
     Route: 030
     Dates: start: 20230926

REACTIONS (2)
  - Illness [Recovered/Resolved]
  - Pyrexia [Recovered/Resolved]
